FAERS Safety Report 5502831-3 (Version None)
Quarter: 2007Q4

REPORT INFORMATION
  Report Type: 
  Country: None (occurrence: None)
  Receive Date: 20071031
  Receipt Date: 20071026
  Transmission Date: 20080405
  Serious: Yes (Death, Life-Threatening)
  Sender: FDA-Public Use
  Company Number: JP-BRACCO-BRO-011764

PATIENT
  Sex: Male
  Weight: 43 kg

DRUGS (7)
  1. IOPAMIDOL [Suspect]
     Indication: PERSISTENT LEFT SUPERIOR VENA CAVA
     Route: 013
     Dates: start: 20070529, end: 20070529
  2. IOPAMIDOL [Suspect]
     Indication: CORONARY ARTERY STENOSIS
     Route: 013
     Dates: start: 20070529, end: 20070529
  3. IOPAMIDOL [Suspect]
     Indication: ARTERIOGRAM CORONARY
     Route: 013
     Dates: start: 20070529, end: 20070529
  4. LIDOCAINE [Concomitant]
     Route: 050
     Dates: start: 20070529
  5. WARFARIN SODIUM [Concomitant]
     Dosage: AMINISTERED AROUNT 2005 FOLLOWING AORTIC VALVE REPLACEMENT
     Route: 048
  6. WARFARIN SODIUM [Concomitant]
     Route: 050
  7. KAYTWO [Concomitant]
     Route: 050

REACTIONS (2)
  - HEPATITIS FULMINANT [None]
  - RENAL FAILURE ACUTE [None]
